FAERS Safety Report 6210711-3 (Version None)
Quarter: 2009Q2

REPORT INFORMATION
  Report Type: 
  Country: None (occurrence: None)
  Receive Date: 20090601
  Receipt Date: 20090528
  Transmission Date: 20091009
  Serious: No
  Sender: FDA-Public Use
  Company Number: US-B.I. PHARMACEUTICALS,INC./RIDGEFIELD-2009-BP-06609BP

PATIENT
  Age: 57 Year
  Sex: Female

DRUGS (4)
  1. ZANTAC 75 [Suspect]
     Indication: DYSPEPSIA
     Dosage: 150MG
     Route: 048
     Dates: start: 20090527
  2. ZANTAC 75 [Suspect]
     Indication: GASTROOESOPHAGEAL REFLUX DISEASE
  3. NEURONTIN [Concomitant]
     Indication: SPINAL OSTEOARTHRITIS
     Dosage: 200MG
     Route: 048
  4. WELLBUTRIN [Concomitant]
     Indication: FATIGUE
     Dosage: 50MG
     Route: 048

REACTIONS (1)
  - CHEST PAIN [None]
